FAERS Safety Report 16017170 (Version 1)
Quarter: 2019Q1

REPORT INFORMATION
  Report Type: Spontaneous
  Country: US (occurrence: US)
  Receive Date: 20190131
  Receipt Date: 20190131
  Transmission Date: 20190418
  Serious: Yes (Life-Threatening, Other)
  Sender: FDA-Public Use
  Company Number: None

PATIENT
  Age: 11 Year
  Sex: Female
  Weight: 49.5 kg

DRUGS (2)
  1. ONFI [Suspect]
     Active Substance: CLOBAZAM
  2. TRIPLEPTAL [Concomitant]

REACTIONS (3)
  - Seizure [None]
  - Condition aggravated [None]
  - Product substitution issue [None]

NARRATIVE: CASE EVENT DATE: 20181201
